FAERS Safety Report 10297481 (Version 1)
Quarter: 2014Q3

REPORT INFORMATION
  Report Type: Spontaneous
  Country: SG (occurrence: SG)
  Receive Date: 20140711
  Receipt Date: 20140711
  Transmission Date: 20150326
  Serious: Yes (Other)
  Sender: FDA-Public Use
  Company Number: SG-JNJFOC-20140702642

PATIENT
  Sex: Male

DRUGS (3)
  1. KETOCONAZOLE. [Suspect]
     Active Substance: KETOCONAZOLE
     Indication: PROSTATE CANCER
     Route: 065
  2. DOCETAXEL [Suspect]
     Active Substance: DOCETAXEL
     Indication: PROSTATE CANCER
     Route: 065
  3. DIETHYLSTILBESTROL [Suspect]
     Active Substance: DIETHYLSTILBESTROL
     Indication: PROSTATE CANCER
     Route: 065

REACTIONS (7)
  - Febrile neutropenia [Unknown]
  - Blood glucose fluctuation [Unknown]
  - Embolism [Unknown]
  - International normalised ratio increased [Unknown]
  - Off label use [Unknown]
  - Neutropenic sepsis [Unknown]
  - Transaminases increased [Unknown]
